FAERS Safety Report 10713221 (Version 3)
Quarter: 2016Q2

REPORT INFORMATION
  Report Type: Spontaneous
  Country: GR (occurrence: GR)
  Receive Date: 20150115
  Receipt Date: 20160510
  Transmission Date: 20160815
  Serious: Yes (Death, Life-Threatening, Hospitalization)
  Sender: FDA-Public Use
  Company Number: GR-TEVA-534541ISR

PATIENT
  Age: 57 Year
  Sex: Male

DRUGS (2)
  1. VINORELBINE [Suspect]
     Active Substance: VINORELBINE\VINORELBINE TARTRATE
     Indication: NON-SMALL CELL LUNG CANCER
  2. PLATOSIN 1MG/ML [Suspect]
     Active Substance: CISPLATIN
     Indication: NON-SMALL CELL LUNG CANCER
     Dosage: 75 MG/M2 DAILY; 75 MG/M2 CYCLIC, EVERY 21 DAYS
     Route: 051

REACTIONS (8)
  - Acute kidney injury [Unknown]
  - Febrile neutropenia [Unknown]
  - Colitis ischaemic [Unknown]
  - Peritonitis [Unknown]
  - Megacolon [Unknown]
  - Shock [Unknown]
  - Septic shock [Unknown]
  - Respiratory failure [Fatal]
